FAERS Safety Report 8909572 (Version 1)
Quarter: 2012Q4

REPORT INFORMATION
  Report Type: Spontaneous
  Country: US (occurrence: None)
  Receive Date: 20121107
  Receipt Date: 20121107
  Transmission Date: 20130627
  Serious: Yes (Other)
  Sender: FDA-Public Use
  Company Number: CIP-2012-00388

PATIENT
  Sex: Female

DRUGS (9)
  1. CARBOPLATIN [Suspect]
     Indication: OVARIAN CANCER
     Dosage: AUC  5  (day 1 of 28 day cycle),  infusion  }  15 minutes
  2. CARBOPLATIN [Suspect]
     Indication: FALLOPIAN TUBE CANCER
     Dosage: AUC  5  (day 1 of 28 day cycle),  infusion  }  15 minutes
  3. CARBOPLATIN [Suspect]
     Indication: PERITONEAL CARCINOMA
     Dosage: AUC  5  (day 1 of 28 day cycle),  infusion  }  15 minutes
  4. DOXORUBICIN (DOXORUBICIN) (DOXORUBICIN) [Suspect]
     Indication: OVARIAN CANCER
     Dosage: (day 1 of 28 day cycle), 
infusion  90 minutes to 1 hour
  5. DOXORUBICIN (DOXORUBICIN) (DOXORUBICIN) [Suspect]
     Indication: FALLOPIAN TUBE CANCER
     Dosage: (day 1 of 28 day cycle), 
infusion  90 minutes to 1 hour
  6. DOXORUBICIN (DOXORUBICIN) (DOXORUBICIN) [Suspect]
     Indication: PERITONEAL CARCINOMA
     Dosage: (day 1 of 28 day cycle), 
infusion  90 minutes to 1 hour
  7. BEVACIZUMAB [Suspect]
     Indication: OVARIAN CANCER
     Dosage: (days 1 and 15 every 28 day cycle),
infusion  90 minutes to 1 hour
  8. BEVACIZUMAB [Suspect]
     Indication: FALLOPIAN TUBE CANCER
     Dosage: (days 1 and 15 every 28 day cycle),
infusion  90 minutes to 1 hour
  9. BEVACIZUMAB [Suspect]
     Indication: PERITONEAL CARCINOMA
     Dosage: (days 1 and 15 every 28 day cycle),
infusion  90 minutes to 1 hour

REACTIONS (1)
  - Renal failure acute [None]
